FAERS Safety Report 6462874-2 (Version None)
Quarter: 2009Q4

REPORT INFORMATION
  Report Type: 
  Country: None (occurrence: None)
  Receive Date: 20091130
  Receipt Date: 20091116
  Transmission Date: 20100525
  Serious: Yes (Hospitalization)
  Sender: FDA-Public Use
  Company Number: IT-GILEAD-2009-0025465

PATIENT
  Sex: Male

DRUGS (4)
  1. VIREAD [Suspect]
     Indication: HEPATITIS B
     Route: 048
     Dates: start: 20090622, end: 20090809
  2. NICOZID [Concomitant]
     Route: 048
     Dates: start: 20090420, end: 20090809
  3. DELTACORTENE [Concomitant]
     Route: 048
     Dates: start: 20090408, end: 20090809
  4. ZYLORIC [Concomitant]
     Route: 048
     Dates: start: 20090408, end: 20090809

REACTIONS (3)
  - DYSPNOEA [None]
  - PRURITUS [None]
  - RASH MACULO-PAPULAR [None]
